FAERS Safety Report 10925943 (Version 1)
Quarter: 2015Q1

REPORT INFORMATION
  Report Type: Report from Study
  Country: TN (occurrence: TN)
  Receive Date: 20150318
  Receipt Date: 20150318
  Transmission Date: 20150721
  Serious: Yes (Death)
  Sender: FDA-Public Use
  Company Number: TN-SA-2015SA032387

PATIENT
  Age: 84 Year
  Sex: Male

DRUGS (10)
  1. GLUCOPHAGE [Concomitant]
     Active Substance: METFORMIN HYDROCHLORIDE
  2. LASILIX [Concomitant]
     Active Substance: FUROSEMIDE
     Route: 048
     Dates: end: 20141221
  3. INSULIN [Concomitant]
     Active Substance: INSULIN NOS
  4. LANSOPRAL [Concomitant]
     Active Substance: LANSOPRAZOLE
  5. CORVASAL [Concomitant]
     Active Substance: LINSIDOMINE
     Route: 048
     Dates: end: 20141221
  6. PLAVIX [Suspect]
     Active Substance: CLOPIDOGREL BISULFATE
     Indication: ACUTE CORONARY SYNDROME
     Route: 048
     Dates: start: 20141125, end: 20141221
  7. ASPEGIC [Concomitant]
     Active Substance: ASPIRIN DL-LYSINE
     Route: 048
     Dates: end: 20141221
  8. RAZON [Concomitant]
  9. TAHOR [Concomitant]
     Active Substance: ATORVASTATIN CALCIUM
     Route: 048
     Dates: end: 20141221
  10. CARDENSIEL [Concomitant]
     Active Substance: BISOPROLOL FUMARATE

REACTIONS (1)
  - Pancreatitis acute [Fatal]

NARRATIVE: CASE EVENT DATE: 20141202
